FAERS Safety Report 8001693-2 (Version None)
Quarter: 2011Q4

REPORT INFORMATION
  Report Type: 
  Country: None (occurrence: None)
  Receive Date: 20111222
  Receipt Date: 20111213
  Transmission Date: 20120403
  Serious: Yes (Hospitalization)
  Sender: FDA-Public Use
  Company Number: SK-NOVOPROD-341483

PATIENT

DRUGS (10)
  1. VICTOZA [Suspect]
     Dosage: 1.2 MG, QD
     Route: 058
     Dates: start: 20110809, end: 20110817
  2. CORVITOL                           /00376901/ [Concomitant]
     Dosage: UNK
     Dates: start: 20070116
  3. VICTOZA [Suspect]
     Indication: TYPE 2 DIABETES MELLITUS
     Dosage: 0.6 MG, QD
     Route: 058
     Dates: start: 20110623, end: 20110629
  4. LISINOPRIL [Concomitant]
     Dosage: UNK
     Dates: start: 20060927
  5. GLUCOPHAGE [Concomitant]
     Dosage: UNK
     Dates: start: 20110217
  6. VICTOZA [Suspect]
     Dosage: 1.2 MG, QD
     Route: 058
     Dates: start: 20110630, end: 20110706
  7. FENOFIBRATE [Concomitant]
  8. FURON                              /00032601/ [Concomitant]
     Dosage: UNK
     Dates: start: 20081010
  9. TORVACARD [Concomitant]
     Dosage: UNK
     Dates: start: 20110623
  10. IPATON [Concomitant]
     Indication: ANTIPLATELET THERAPY
     Dosage: UNK
     Dates: start: 20110717

REACTIONS (4)
  - DRUG HYPERSENSITIVITY [None]
  - RASH GENERALISED [None]
  - OEDEMA PERIPHERAL [None]
  - DERMATITIS ALLERGIC [None]
